FAERS Safety Report 8803920 (Version 1)
Quarter: 2012Q4

REPORT INFORMATION
  Report Type: 
  Country: US (occurrence: US)
  Receive Date: 20120924
  Receipt Date: 20120924
  Transmission Date: 20130627
  Serious: No
  Sender: FDA-Public Use
  Company Number: US-PFIZER INC-2012233333

PATIENT
  Age: 72 Year
  Sex: Female
  Weight: 56.69 kg

DRUGS (3)
  1. PREMARIN [Suspect]
     Indication: VAGINAL PROLAPSE
     Dosage: UNK, 2x/week
     Route: 067
  2. GABAPENTIN [Concomitant]
     Indication: LIMB DISCOMFORT
     Dosage: 600 mg (four tablets), 1x/day (at night)
  3. CLONAZEPAM [Concomitant]
     Indication: LIMB DISCOMFORT
     Dosage: 0.5 mg (one and half tablet ), 1x/day

REACTIONS (3)
  - Ligament rupture [Unknown]
  - Tendonitis [Unknown]
  - Back injury [Unknown]
